FAERS Safety Report 16672976 (Version 1)
Quarter: 2019Q3

REPORT INFORMATION
  Report Type: Spontaneous
  Country: US (occurrence: US)
  Receive Date: 20190620
  Receipt Date: 20190620
  Transmission Date: 20191004
  Serious: Yes (Other)
  Sender: FDA-Public Use
  Company Number: None

PATIENT
  Age: 48 Year
  Sex: Female

DRUGS (1)
  1. NO DRIP NASAL MIST NASAL DECONGESTANT SEVERE CONGESTION [Suspect]
     Active Substance: OXYMETAZOLINE HYDROCHLORIDE
     Route: 045
     Dates: start: 20190617, end: 20190617

REACTIONS (4)
  - Application site pain [None]
  - Application site haemorrhage [None]
  - Suspected product tampering [None]
  - Suspected product contamination [None]

NARRATIVE: CASE EVENT DATE: 20190617
